FAERS Safety Report 24334599 (Version 3)
Quarter: 2024Q4

REPORT INFORMATION
  Report Type: Report from Study
  Country: US (occurrence: US)
  Receive Date: 20240918
  Receipt Date: 20241120
  Transmission Date: 20250115
  Serious: Yes (Other)
  Sender: SUNOVION
  Company Number: US-SUMITOMO PHARMA SWITZERLAND GMBH-2024SPA001707

PATIENT

DRUGS (2)
  1. ORGOVYX [Suspect]
     Active Substance: RELUGOLIX
     Indication: Prostate cancer
     Dosage: 120 MG, QD
     Route: 048
     Dates: start: 20240806
  2. XTANDI [Suspect]
     Active Substance: ENZALUTAMIDE
     Indication: Prostate cancer
     Dosage: UNK
     Route: 065
     Dates: start: 20240806

REACTIONS (17)
  - Stent placement [Unknown]
  - Narcolepsy [Unknown]
  - Muscular weakness [Recovering/Resolving]
  - Muscle atrophy [Recovering/Resolving]
  - Fat tissue increased [Recovering/Resolving]
  - Restless legs syndrome [Recovering/Resolving]
  - Nocturia [Unknown]
  - Dyspepsia [Unknown]
  - Feeling cold [Unknown]
  - Hot flush [Recovered/Resolved]
  - Lethargy [Unknown]
  - Asthenia [Recovering/Resolving]
  - Constipation [Recovering/Resolving]
  - Gynaecomastia [Unknown]
  - Insomnia [Recovering/Resolving]
  - Fatigue [Unknown]
  - Incorrect dose administered [Unknown]
